FAERS Safety Report 19595184 (Version 1)
Quarter: 2021Q3

REPORT INFORMATION
  Report Type: Spontaneous
  Country: US (occurrence: US)
  Receive Date: 20210722
  Receipt Date: 20210722
  Transmission Date: 20211014
  Serious: Yes (Life-Threatening, Hospitalization)
  Sender: FDA-Public Use
  Company Number: US-ORGANON-O2107USA001075

PATIENT
  Age: 27 Year
  Sex: Female
  Weight: 85.8 kg

DRUGS (1)
  1. NUVARING [Suspect]
     Active Substance: ETHINYL ESTRADIOL\ETONOGESTREL
     Indication: POLYCYSTIC OVARIES
     Dosage: 1 RING (0.12MG ETONGESTREL, 0.015MG ETHINYL ESTRADIOL), QD
     Route: 067
     Dates: start: 20210301, end: 20210610

REACTIONS (1)
  - Gallbladder hyperfunction [Unknown]

NARRATIVE: CASE EVENT DATE: 20210420
